FAERS Safety Report 10908610 (Version 1)
Quarter: 2015Q1

REPORT INFORMATION
  Report Type: Spontaneous
  Country: DE (occurrence: DE)
  Receive Date: 20150312
  Receipt Date: 20150312
  Transmission Date: 20150721
  Serious: Yes (Other)
  Sender: FDA-Public Use
  Company Number: DE-ACTAVIS-2015-04387

PATIENT
  Age: 30 Year
  Sex: Female

DRUGS (4)
  1. AZATHIOPRINE (UNKNOWN) [Suspect]
     Active Substance: AZATHIOPRINE
     Indication: CROHN^S DISEASE
     Dosage: UNKNOWN
     Route: 065
  2. AMPICILLIN-SULBACTAM (UNKNOWN) [Suspect]
     Active Substance: AMPICILLIN SODIUM
     Indication: ENDOCARDITIS STAPHYLOCOCCAL
     Dosage: UNKNOWN
     Route: 065
  3. GENTAMICIN (UNKNOWN) [Suspect]
     Active Substance: GENTAMICIN
     Indication: ENDOCARDITIS STAPHYLOCOCCAL
     Dosage: UNKNOWN
     Route: 065
  4. VANCOMYCIN (UNKNOWN) [Suspect]
     Active Substance: VANCOMYCIN
     Indication: ENDOCARDITIS STAPHYLOCOCCAL
     Dosage: UNKNOWN
     Route: 065

REACTIONS (3)
  - Endocarditis staphylococcal [Unknown]
  - Pathogen resistance [Unknown]
  - Drug ineffective [Unknown]
